FAERS Safety Report 4554065-7 (Version None)
Quarter: 2005Q1

REPORT INFORMATION
  Report Type: 
  Country: None (occurrence: None)
  Receive Date: 20050113
  Receipt Date: 20050113
  Transmission Date: 20050727
  Serious: Yes (Hospitalization, Disabling)
  Sender: FDA-Public Use
  Company Number: None

PATIENT
  Age: 73 Year
  Sex: Female
  Weight: 90.7194 kg

DRUGS (1)
  1. LIPITOR [Suspect]
     Dosage: 1/2 TABLET 40MG 1 X DAY

REACTIONS (3)
  - ALOPECIA [None]
  - CONVULSION [None]
  - MOVEMENT DISORDER [None]
